FAERS Safety Report 4384374-6 (Version None)
Quarter: 2004Q2

REPORT INFORMATION
  Report Type: 
  Country: None (occurrence: None)
  Receive Date: 20040607
  Receipt Date: 20031024
  Transmission Date: 20050107
  Serious: Yes (Other)
  Sender: FDA-Public Use
  Company Number: 350292

PATIENT
  Sex: 0

DRUGS (1)
  1. ISOTRETINOIN [Suspect]
     Indication: ACNE
     Dosage: ORAL
     Route: 048
     Dates: start: 20010615, end: 20020615

REACTIONS (2)
  - NO ADVERSE EFFECT [None]
  - NORMAL NEWBORN [None]
